FAERS Safety Report 13152423 (Version 2)
Quarter: 2017Q1

REPORT INFORMATION
  Report Type: Spontaneous
  Country: SI (occurrence: SI)
  Receive Date: 20170125
  Receipt Date: 20170131
  Transmission Date: 20170428
  Serious: Yes (Hospitalization)
  Sender: FDA-Public Use
  Company Number: SI-009507513-1701SVN010212

PATIENT
  Age: 80 Year
  Sex: Female

DRUGS (4)
  1. AGLURAB [Interacting]
     Active Substance: METFORMIN HYDROCHLORIDE
     Indication: TYPE 2 DIABETES MELLITUS
     Dosage: 1000 MG TABLET; 2X/DAY
  2. JANUVIA [Suspect]
     Active Substance: SITAGLIPTIN PHOSPHATE
     Indication: TYPE 2 DIABETES MELLITUS
     Dosage: 100 MG TABLET, 1X/DAY
     Route: 048
     Dates: end: 20150804
  3. DAONIL [Interacting]
     Active Substance: GLYBURIDE
     Indication: TYPE 2 DIABETES MELLITUS
     Dosage: 5MG TABLETS; 2 TABLETS; 2X/DAY
     Dates: end: 20150804
  4. BISOPROLOL [Concomitant]
     Active Substance: BISOPROLOL
     Indication: HYPERTENSION
     Dosage: 5 MG TABLET; 1X/DAY

REACTIONS (3)
  - Drug interaction [Unknown]
  - Diplopia [None]
  - Hypoglycaemia [Recovered/Resolved]

NARRATIVE: CASE EVENT DATE: 20150803
